FAERS Safety Report 25343695 (Version 1)
Quarter: 2025Q2

REPORT INFORMATION
  Report Type: Spontaneous
  Country: US (occurrence: None)
  Receive Date: 20250521
  Receipt Date: 20250521
  Transmission Date: 20250717
  Serious: Yes (Life-Threatening, Hospitalization)
  Sender: FDA-CTU
  Company Number: None

PATIENT
  Age: 69 Year
  Sex: Female
  Weight: 79.2 kg

DRUGS (3)
  1. CEFTRIAXONE [Suspect]
     Active Substance: CEFTRIAXONE
     Indication: Urinary tract infection
     Route: 042
     Dates: start: 20250430, end: 20250430
  2. iopamidoL (ISOVUE-370) 370 mg iodine /mL (76 %) injection [Concomitant]
     Dates: start: 20250430, end: 20250430
  3. sodium chloride 0.9% (NS) bolus [Concomitant]
     Dates: start: 20250430, end: 20250430

REACTIONS (6)
  - Malaise [None]
  - Tachycardia [None]
  - Unresponsive to stimuli [None]
  - Bradycardia [None]
  - Glucose tolerance impaired [None]
  - Cardiac arrest [None]

NARRATIVE: CASE EVENT DATE: 20250430
